FAERS Safety Report 5795752-2 (Version None)
Quarter: 2008Q2

REPORT INFORMATION
  Report Type: 
  Country: None (occurrence: None)
  Receive Date: 20080630
  Receipt Date: 20080627
  Transmission Date: 20081010
  Serious: Yes (Other)
  Sender: FDA-Public Use
  Company Number: GB-BAYER-200811044BNE

PATIENT
  Sex: Male

DRUGS (1)
  1. MABCAMPATH [Suspect]

REACTIONS (2)
  - METABOLIC ENCEPHALOPATHY [None]
  - TREMOR [None]
